FAERS Safety Report 11610992 (Version 1)
Quarter: 2015Q4

REPORT INFORMATION
  Report Type: Spontaneous
  Country: US (occurrence: None)
  Receive Date: 20151007
  Receipt Date: 20151007
  Transmission Date: 20160304
  Serious: No
  Sender: FDA-Public Use
  Company Number: None

PATIENT
  Age: 39 Year
  Sex: Female

DRUGS (1)
  1. CAPECITABINE. [Suspect]
     Active Substance: CAPECITABINE
     Indication: NEOPLASM MALIGNANT
     Dosage: BID X14 DAYS, OFF 7 DAYS
     Route: 048
     Dates: start: 20150824

REACTIONS (2)
  - Pruritus [None]
  - Dermatitis acneiform [None]

NARRATIVE: CASE EVENT DATE: 20150915
